FAERS Safety Report 8122240-0 (Version None)
Quarter: 2012Q1

REPORT INFORMATION
  Report Type: 
  Country: None (occurrence: None)
  Receive Date: 20120208
  Receipt Date: 20111108
  Transmission Date: 20120608
  Serious: Yes (Hospitalization, Disabling, Other)
  Sender: FDA-Public Use
  Company Number: GR-GLAXOSMITHKLINE-Z0012709A

PATIENT
  Sex: Female
  Weight: 64.5 kg

DRUGS (2)
  1. ARZERRA [Suspect]
     Indication: NON-HODGKIN'S LYMPHOMA
     Route: 042
     Dates: start: 20110331
  2. BENDAMUSTINE [Suspect]
     Indication: NON-HODGKIN'S LYMPHOMA
     Route: 042
     Dates: start: 20110331

REACTIONS (1)
  - HAEMOLYTIC ANAEMIA [None]
